FAERS Safety Report 11118826 (Version 3)
Quarter: 2015Q4

REPORT INFORMATION
  Report Type: Spontaneous
  Country: US (occurrence: US)
  Receive Date: 20150518
  Receipt Date: 20151005
  Transmission Date: 20160304
  Serious: Yes (Death, Hospitalization)
  Sender: FDA-Public Use
  Company Number: US-JNJFOC-20150507454

PATIENT
  Age: 85 Year
  Sex: Female

DRUGS (9)
  1. XARELTO [Suspect]
     Active Substance: RIVAROXABAN
     Indication: ATRIAL FIBRILLATION
     Route: 048
     Dates: start: 201311, end: 201402
  2. XARELTO [Suspect]
     Active Substance: RIVAROXABAN
     Indication: THROMBOSIS PROPHYLAXIS
     Route: 048
     Dates: start: 201311, end: 201402
  3. XARELTO [Suspect]
     Active Substance: RIVAROXABAN
     Indication: CEREBROVASCULAR ACCIDENT PROPHYLAXIS
     Route: 048
     Dates: start: 201311, end: 201402
  4. CALCIUM [Concomitant]
     Active Substance: CALCIUM
     Route: 065
  5. LANOXIN [Concomitant]
     Active Substance: DIGOXIN
     Route: 065
  6. METOPROLOL [Concomitant]
     Active Substance: METOPROLOL
     Route: 065
  7. LISINOPRIL. [Concomitant]
     Active Substance: LISINOPRIL
  8. NAMENDA [Concomitant]
     Active Substance: MEMANTINE HYDROCHLORIDE
     Route: 065
  9. MUCINEX [Concomitant]
     Active Substance: GUAIFENESIN
     Route: 065

REACTIONS (6)
  - Cardiac failure congestive [Fatal]
  - Cerebral haemorrhage [Unknown]
  - Subgaleal haematoma [Unknown]
  - Fall [Unknown]
  - Laceration [Unknown]
  - Subdural haematoma [Unknown]

NARRATIVE: CASE EVENT DATE: 20140224
